FAERS Safety Report 5523612-0 (Version None)
Quarter: 2007Q4

REPORT INFORMATION
  Report Type: 
  Country: None (occurrence: None)
  Receive Date: 20071121
  Receipt Date: 20071114
  Transmission Date: 20080405
  Serious: Yes (Other)
  Sender: FDA-Public Use
  Company Number: US-SANOFI-SYNTHELABO-A03200705447

PATIENT
  Sex: Female
  Weight: 63.5 kg

DRUGS (9)
  1. ASPIRIN [Suspect]
     Indication: DRUG USE FOR UNKNOWN INDICATION
     Route: 048
  2. INSULIN [Concomitant]
     Dosage: UNK
     Route: 065
  3. PLAVIX [Suspect]
     Indication: VASCULAR GRAFT
     Route: 048
     Dates: start: 19970101
  4. PLAVIX [Suspect]
     Indication: STENT PLACEMENT
     Route: 048
     Dates: start: 19970101
  5. LASIX [Concomitant]
     Route: 048
  6. ACTONEL [Concomitant]
     Route: 048
  7. ECOTRIN [Concomitant]
     Route: 048
  8. DETROL [Concomitant]
     Route: 048
  9. TOPROL-XL [Concomitant]
     Route: 048

REACTIONS (5)
  - CONTUSION [None]
  - FALL [None]
  - HYPOGLYCAEMIA [None]
  - PAIN [None]
  - TRAUMATIC FRACTURE [None]
